FAERS Safety Report 12965971 (Version 2)
Quarter: 2016Q4

REPORT INFORMATION
  Report Type: Spontaneous
  Country: BR (occurrence: BR)
  Receive Date: 20161122
  Receipt Date: 20161220
  Transmission Date: 20170207
  Serious: Yes (Other)
  Sender: FDA-Public Use
  Company Number: BR-SA-2016SA209373

PATIENT
  Sex: Male

DRUGS (3)
  1. GLIMEPIRIDE. [Concomitant]
     Active Substance: GLIMEPIRIDE
     Indication: TYPE 2 DIABETES MELLITUS
     Dosage: START DATE: 12 YEARS AGO
  2. APIDRA [Suspect]
     Active Substance: INSULIN GLULISINE
     Dosage: 30 IU IN THE MORNING, 14 IU AT LUNCH AND 25 IU IN THE AFTERNOON
     Route: 065
     Dates: start: 2004
  3. GLIFAGE [Concomitant]
     Active Substance: METFORMIN HYDROCHLORIDE
     Indication: TYPE 2 DIABETES MELLITUS
     Dosage: START DATE: 12 YEARS AGO

REACTIONS (1)
  - Optic ischaemic neuropathy [Recovering/Resolving]

NARRATIVE: CASE EVENT DATE: 201609
